FAERS Safety Report 4870479-X (Version None)
Quarter: 2005Q4

REPORT INFORMATION
  Report Type: 
  Country: None (occurrence: None)
  Receive Date: 20051228
  Receipt Date: 20051221
  Transmission Date: 20060501
  Serious: Yes (Death, Other)
  Sender: FDA-Public Use
  Company Number: 2005-US-00912

PATIENT
  Age: 73 Year
  Sex: Male
  Weight: 73.4827 kg

DRUGS (8)
  1. CLOZAPINE [Suspect]
     Indication: PSYCHOTIC DISORDER
     Dosage: 35 MG, QD, ORAL
     Route: 048
     Dates: start: 20050701, end: 20051001
  2. GABAPENTIN [Concomitant]
  3. PANTOPRAZOLE [Concomitant]
  4. ASPIRIN [Concomitant]
  5. TOCOPHEROL CONCENTRATE CAP [Concomitant]
  6. DOCUSATE [Concomitant]
  7. LACTULOSE [Concomitant]
  8. ENALAPRIL [Concomitant]

REACTIONS (5)
  - ABDOMINAL PAIN UPPER [None]
  - DEHYDRATION [None]
  - GASTRITIS HAEMORRHAGIC [None]
  - NAUSEA [None]
  - VOMITING [None]
